FAERS Safety Report 10538893 (Version 3)
Quarter: 2015Q1

REPORT INFORMATION
  Report Type: Spontaneous
  Country: US (occurrence: US)
  Receive Date: 20141023
  Receipt Date: 20150109
  Transmission Date: 20150720
  Serious: Yes (Death, Other)
  Sender: FDA-Public Use
  Company Number: US-GLAXOSMITHKLINE-US2014GSK010790

PATIENT
  Age: 71 Year
  Sex: Female
  Weight: 94.33 kg

DRUGS (9)
  1. ALLOPURINOL. [Concomitant]
     Active Substance: ALLOPURINOL
  2. OMEPRAZOLE. [Concomitant]
     Active Substance: OMEPRAZOLE
  3. PROMETHAZINE [Concomitant]
     Active Substance: PROMETHAZINE\PROMETHAZINE HYDROCHLORIDE
  4. HYDREA [Concomitant]
     Active Substance: HYDROXYUREA
  5. POTASSIUM CHLORIDE. [Concomitant]
     Active Substance: POTASSIUM CHLORIDE
  6. PROMACTA [Suspect]
     Active Substance: ELTROMBOPAG OLAMINE
     Indication: IMMUNE THROMBOCYTOPENIC PURPURA
     Dosage: 50 MG, UNK
     Route: 065
     Dates: start: 20131018, end: 20140418
  7. PROMACTA [Suspect]
     Active Substance: ELTROMBOPAG OLAMINE
     Dosage: 25 MG, Z
     Dates: end: 20140428
  8. FUROSEMIDE. [Concomitant]
     Active Substance: FUROSEMIDE
  9. ATENOLOL. [Concomitant]
     Active Substance: ATENOLOL

REACTIONS (10)
  - Leukocytosis [Unknown]
  - Anaemia macrocytic [Unknown]
  - Leukaemia [Fatal]
  - Chronic myelomonocytic leukaemia [Fatal]
  - Thrombocytopenia [Unknown]
  - Pallor [Unknown]
  - Anaemia [Unknown]
  - Haemorrhage [Unknown]
  - Fatigue [Unknown]
  - Increased tendency to bruise [Unknown]

NARRATIVE: CASE EVENT DATE: 201404
